FAERS Safety Report 4488293-6 (Version None)
Quarter: 2004Q4

REPORT INFORMATION
  Report Type: 
  Country: None (occurrence: None)
  Receive Date: 20041026
  Receipt Date: 20041013
  Transmission Date: 20050328
  Serious: Yes (Death, Hospitalization)
  Sender: FDA-Public Use
  Company Number: 220030K04USA

PATIENT
  Age: 45 Year
  Sex: Male
  Weight: 76.2043 kg

DRUGS (1)
  1. SAIZEN [Suspect]
     Indication: GROWTH HORMONE DEFICIENCY
     Dosage: 5 MG, 1 IN 1 DAYS, SUBCUTANEOUS
     Route: 058
     Dates: start: 20040401, end: 20040526

REACTIONS (11)
  - ARTHRALGIA [None]
  - DIFFICULTY IN WALKING [None]
  - HEADACHE [None]
  - LOSS OF CONSCIOUSNESS [None]
  - MEDICATION ERROR [None]
  - MYALGIA [None]
  - OEDEMA PERIPHERAL [None]
  - RECTAL HAEMORRHAGE [None]
  - THROMBOSIS [None]
  - VISION BLURRED [None]
  - VISUAL DISTURBANCE [None]
